FAERS Safety Report 24261269 (Version 2)
Quarter: 2024Q3

REPORT INFORMATION
  Report Type: Spontaneous
  Country: JP (occurrence: JP)
  Receive Date: 20240829
  Receipt Date: 20240906
  Transmission Date: 20241016
  Serious: Yes (Other)
  Sender: NOVARTIS
  Company Number: JP-002147023-NVSJ2024JP009897

PATIENT
  Age: 84 Year
  Sex: Female

DRUGS (3)
  1. LETROZOLE [Suspect]
     Active Substance: LETROZOLE
     Indication: Ovarian granulosa cell tumour
     Dosage: UNK
     Route: 065
  2. LETROZOLE [Suspect]
     Active Substance: LETROZOLE
     Dosage: UNK
     Route: 065
  3. LEUPROLIDE ACETATE [Concomitant]
     Active Substance: ISOPROPYL ALCOHOL\LEUPROLIDE ACETATE
     Indication: Ovarian granulosa cell tumour
     Dosage: UNK
     Route: 065

REACTIONS (3)
  - Ovarian granulosa cell tumour [Recovering/Resolving]
  - Malignant neoplasm progression [Recovering/Resolving]
  - Product use in unapproved indication [Unknown]
